FAERS Safety Report 9541652 (Version 1)
Quarter: 2013Q3

REPORT INFORMATION
  Report Type: Spontaneous
  Country: SI (occurrence: SI)
  Receive Date: 20130923
  Receipt Date: 20130923
  Transmission Date: 20140515
  Serious: Yes (Other)
  Sender: FDA-Public Use
  Company Number: SI-ELI_LILLY_AND_COMPANY-SI201309005081

PATIENT
  Age: 82 Year
  Sex: Female

DRUGS (5)
  1. CYMBALTA [Suspect]
     Indication: MAJOR DEPRESSION
     Dosage: 60 MG, QD
     Route: 048
     Dates: start: 20130621, end: 20130812
  2. BROMAZEPAM [Concomitant]
     Dosage: 3 MG, QD
     Route: 065
  3. PREGABALIN [Concomitant]
     Dosage: 75 MG, BID
     Route: 065
  4. OXYCODONE [Concomitant]
     Dosage: 5 MG, BID
     Route: 065
  5. NALOXONE [Concomitant]
     Dosage: 2.5 MG, BID
     Route: 065

REACTIONS (2)
  - Dementia [Recovered/Resolved]
  - Amnesia [Recovered/Resolved]
